FAERS Safety Report 9630787 (Version 2)
Quarter: 2013Q4

REPORT INFORMATION
  Report Type: Spontaneous
  Country: US (occurrence: None)
  Receive Date: 20131016
  Receipt Date: 20131030
  Transmission Date: 20140711
  Serious: Yes (Other)
  Sender: FDA-Public Use
  Company Number: UTC-038712

PATIENT
  Age: 76 Year
  Sex: Female
  Weight: 54.5 kg

DRUGS (4)
  1. REMODULIN (1 MILLIGRAM/MILLILITERS , INJECTION FOR INFUSION) (TREPROSTINIL SODIUM) [Suspect]
     Indication: COR PULMONALE CHRONIC
     Dosage: (0.047 UG/KG, 1 IN 1 MIN)
     Route: 041
  2. LETAIRIS (AMBRISENTAN) (TABLET) (AMBRISENTAN) [Suspect]
     Indication: PULMONARY HYPERTENSION
     Dosage: (10 MG, 1 IN 1 D)
     Dates: start: 20070817
  3. ADCIRCA [Concomitant]
  4. WARFARIN (UNKNOWN) [Concomitant]

REACTIONS (1)
  - Dysentery [None]
